FAERS Safety Report 7558126-X (Version None)
Quarter: 2011Q2

REPORT INFORMATION
  Report Type: 
  Country: None (occurrence: None)
  Receive Date: 20110620
  Receipt Date: 20110609
  Transmission Date: 20111010
  Serious: Yes (Other)
  Sender: FDA-Public Use
  Company Number: GB-SANOFI-AVENTIS-2011SA036484

PATIENT
  Age: 57 Year
  Sex: Female

DRUGS (2)
  1. INSULIN GLARGINE [Suspect]
     Indication: DIABETES MELLITUS
     Route: 058
     Dates: start: 20100401
  2. ALL OTHER THERAPEUTIC PRODUCTS [Suspect]
     Route: 058
     Dates: start: 20100401, end: 20110324

REACTIONS (5)
  - EYE PAIN [None]
  - ANGLE CLOSURE GLAUCOMA [None]
  - HEADACHE [None]
  - SWELLING [None]
  - VISION BLURRED [None]
